FAERS Safety Report 13613202 (Version 2)
Quarter: 2018Q4

REPORT INFORMATION
  Report Type: Spontaneous
  Country: IT (occurrence: IT)
  Receive Date: 20170605
  Receipt Date: 20181104
  Transmission Date: 20190204
  Serious: Yes (Death, Hospitalization)
  Sender: FDA-Public Use
  Company Number: PHHY2017IT077493

PATIENT
  Age: 35 Year
  Sex: Female

DRUGS (3)
  1. CHLORPROMAZINE. [Concomitant]
     Active Substance: CHLORPROMAZINE
     Indication: PRODUCT USED FOR UNKNOWN INDICATION
     Route: 065
  2. ATENOLOL. [Suspect]
     Active Substance: ATENOLOL
     Indication: TACHYCARDIA
     Route: 065
  3. VERAPAMIL [Interacting]
     Active Substance: VERAPAMIL HYDROCHLORIDE
     Indication: PRODUCT USED FOR UNKNOWN INDICATION
     Route: 065

REACTIONS (8)
  - Pulmonary oedema [Fatal]
  - Loss of consciousness [Fatal]
  - Cardiogenic shock [Fatal]
  - Toxicity to various agents [Fatal]
  - Oxygen saturation decreased [Fatal]
  - Poisoning [Fatal]
  - Drug interaction [Fatal]
  - Accidental overdose [Fatal]
